FAERS Safety Report 5719788-2 (Version None)
Quarter: 2008Q2

REPORT INFORMATION
  Report Type: 
  Country: None (occurrence: None)
  Receive Date: 20080428
  Receipt Date: 20080416
  Transmission Date: 20081010
  Serious: Yes (Other)
  Sender: FDA-Public Use
  Company Number: IT-BAYER-200816971GPV

PATIENT
  Age: 57 Year
  Sex: Male

DRUGS (5)
  1. INTERFERON-BETA 1B [Suspect]
     Indication: RELAPSING-REMITTING MULTIPLE SCLEROSIS
     Route: 065
     Dates: start: 20050501, end: 20051001
  2. INTERFERON-BETA-1A [Suspect]
     Indication: RELAPSING-REMITTING MULTIPLE SCLEROSIS
     Route: 065
     Dates: start: 20051001, end: 20061201
  3. RAMIPRIL [Concomitant]
     Indication: HYPERTENSION
     Route: 065
  4. IRBESARTAN [Concomitant]
     Indication: HYPERTENSION
     Route: 065
  5. AMLODIPINE [Concomitant]
     Indication: HYPERTENSION
     Route: 065

REACTIONS (2)
  - RAYNAUD'S PHENOMENON [None]
  - SKIN ULCER [None]
